FAERS Safety Report 14232282 (Version 1)
Quarter: 2017Q4

REPORT INFORMATION
  Report Type: Spontaneous
  Country: US (occurrence: US)
  Receive Date: 20171128
  Receipt Date: 20171128
  Transmission Date: 20180321
  Serious: Yes (Other)
  Sender: FDA-Public Use
  Company Number: US-PFIZER INC-2017505190

PATIENT
  Sex: Female

DRUGS (1)
  1. TIKOSYN [Suspect]
     Active Substance: DOFETILIDE
     Dosage: 125 UG, 2X/DAY

REACTIONS (1)
  - Clostridium difficile infection [Unknown]
